FAERS Safety Report 7659759-2 (Version None)
Quarter: 2011Q3

REPORT INFORMATION
  Report Type: 
  Country: None (occurrence: None)
  Receive Date: 20110805
  Receipt Date: 20110728
  Transmission Date: 20111222
  Serious: Yes (Hospitalization, Other)
  Sender: FDA-Public Use
  Company Number: PHHY2011GB68913

PATIENT
  Age: 40 Year
  Sex: Male

DRUGS (3)
  1. METHADONE HYDROCHLORIDE [Suspect]
     Dosage: 120 ML, QD
  2. METHADONE HYDROCHLORIDE [Suspect]
     Dosage: 60 MG, QD
  3. BISOPROLOL FUMARATE [Concomitant]

REACTIONS (11)
  - HYPOMAGNESAEMIA [None]
  - SECONDARY HYPOGONADISM [None]
  - HYPOKALAEMIA [None]
  - DILATATION VENTRICULAR [None]
  - VENTRICULAR HYPOKINESIA [None]
  - VENTRICULAR FIBRILLATION [None]
  - EJECTION FRACTION DECREASED [None]
  - TROPONIN I INCREASED [None]
  - CARDIAC ARREST [None]
  - ELECTROCARDIOGRAM QT PROLONGED [None]
  - SINUS BRADYCARDIA [None]
